FAERS Safety Report 6742408-5 (Version None)
Quarter: 2010Q2

REPORT INFORMATION
  Report Type: 
  Country: None (occurrence: None)
  Receive Date: 20100526
  Receipt Date: 20100514
  Transmission Date: 20101027
  Serious: Yes (Hospitalization, Other)
  Sender: FDA-Public Use
  Company Number: PHHY2010FR22502

PATIENT
  Sex: Female
  Weight: 82 kg

DRUGS (2)
  1. ICL670A ICL+ [Suspect]
     Indication: IRON OVERLOAD
     Dosage: 2500 MG DAILY
     Dates: start: 20060201, end: 20090902
  2. ICL670A ICL+ [Suspect]
     Dosage: 500 MG DAILY
     Route: 048
     Dates: start: 20091015

REACTIONS (6)
  - CHOLESTASIS [None]
  - CYTOLYTIC HEPATITIS [None]
  - DEVICE RELATED SEPSIS [None]
  - DRUG TOXICITY [None]
  - OSTEONECROSIS [None]
  - OSTEOSIS [None]
